FAERS Safety Report 5715370-1 (Version None)
Quarter: 2008Q2

REPORT INFORMATION
  Report Type: 
  Country: None (occurrence: None)
  Receive Date: 20080423
  Receipt Date: 20080411
  Transmission Date: 20081010
  Serious: Yes (Life-Threatening)
  Sender: FDA-Public Use
  Company Number: IT-PFIZER INC-2008032842

PATIENT
  Sex: Male

DRUGS (3)
  1. UNASYN [Suspect]
     Indication: ANTIBIOTIC PROPHYLAXIS
     Route: 042
     Dates: start: 20080226, end: 20080226
  2. RANITIDINE [Concomitant]
     Dates: start: 20080226, end: 20080226
  3. MIDAZOLAM HCL [Concomitant]
     Dates: start: 20080226, end: 20080226

REACTIONS (3)
  - CARDIAC ARREST [None]
  - DYSPNOEA [None]
  - HYPOTENSION [None]
